FAERS Safety Report 8458461-7 (Version None)
Quarter: 2012Q2

REPORT INFORMATION
  Report Type: 
  Country: None (occurrence: None)
  Receive Date: 20120615
  Receipt Date: 20120604
  Transmission Date: 20120825
  Serious: Yes (Hospitalization, Other)
  Sender: FDA-Public Use
  Company Number: 2012P1037477

PATIENT
  Age: 48 Year
  Sex: Female

DRUGS (2)
  1. METHYLPREDNISOLONE [Suspect]
  2. UNSPECIFIED STEROID (NO PREF. NAME) [Suspect]

REACTIONS (4)
  - SHOCK [None]
  - ABDOMINAL PAIN [None]
  - GASTROENTERITIS VIRAL [None]
  - HYPOTENSION [None]
